FAERS Safety Report 5325441-X (Version None)
Quarter: 2007Q2

REPORT INFORMATION
  Report Type: 
  Country: None (occurrence: None)
  Receive Date: 20070515
  Receipt Date: 20070501
  Transmission Date: 20071010
  Serious: Yes (Life-Threatening, Hospitalization)
  Sender: FDA-Public Use
  Company Number: US-GENENTECH-233814

PATIENT
  Sex: Female

DRUGS (4)
  1. BEVACIZUMAB [Suspect]
     Indication: COLON CANCER
     Dosage: 5 MG/KG, Q2W
     Route: 042
     Dates: start: 20060907
  2. OXALIPLATIN [Suspect]
     Indication: COLON CANCER
     Dosage: 85 MG/M2, Q2W
     Route: 042
     Dates: start: 20060907
  3. FLUOROURACIL [Suspect]
     Indication: COLON CANCER
     Dosage: 400 MG/M2, Q2W
     Route: 042
     Dates: start: 20060907
  4. LEUCOVORIN CALCIUM [Suspect]
     Indication: COLON CANCER
     Dosage: 400 MG/M2, Q2W
     Route: 042
     Dates: start: 20060907

REACTIONS (3)
  - ATRIAL FIBRILLATION [None]
  - CONFUSIONAL STATE [None]
  - HYPERGLYCAEMIA [None]
